FAERS Safety Report 12691881 (Version 2)
Quarter: 2016Q3

REPORT INFORMATION
  Report Type: Report from Study
  Country: JP (occurrence: JP)
  Receive Date: 20160827
  Receipt Date: 20160906
  Transmission Date: 20161109
  Serious: Yes (Death, Hospitalization, Other)
  Sender: FDA-Public Use
  Company Number: JP-AMGEN-JPNCT2016088235

PATIENT
  Age: 65 Year
  Sex: Male
  Weight: 69.3 kg

DRUGS (13)
  1. OXALIPLATIN. [Suspect]
     Active Substance: OXALIPLATIN
     Indication: COLON CANCER
     Dosage: 140 MG, Q2WEEKS
     Route: 041
     Dates: start: 20160426, end: 20160705
  2. PIOGLITAZONE. [Concomitant]
     Active Substance: PIOGLITAZONE
     Indication: DIABETES MELLITUS
     Dosage: 15 MG, QD
     Route: 048
  3. METFORMIN HYDROCHLORIDE W/VILDAGLIPTIN [Concomitant]
     Active Substance: METFORMIN HYDROCHLORIDE\VILDAGLIPTIN
     Indication: DIABETES MELLITUS
     Dosage: 1 DF, BID
     Route: 048
     Dates: start: 20160719, end: 20160719
  4. PYDOXAL [Concomitant]
     Active Substance: PYRIDOXAL
     Indication: CUTANEOUS SYMPTOM
     Dosage: 30 MG, BID
     Route: 048
     Dates: start: 20160628
  5. PANITUMUMAB [Suspect]
     Active Substance: PANITUMUMAB
     Indication: COLON CANCER
     Dosage: 400 MG, Q2WK
     Route: 041
     Dates: start: 20160426, end: 20160705
  6. UNISIA [Concomitant]
     Active Substance: AMLODIPINE BESYLATE\CANDESARTAN CILEXETIL
     Indication: HYPERTENSION
     Dosage: 1 DF, QD
     Route: 048
  7. ALLEGRA [Concomitant]
     Active Substance: FEXOFENADINE HYDROCHLORIDE
     Indication: CUTANEOUS SYMPTOM
     Dosage: 60 MG, BID
     Route: 048
     Dates: start: 20160628
  8. CINAL [Concomitant]
     Active Substance: ASCORBIC ACID\CALCIUM PANTOTHENATE
     Indication: CUTANEOUS SYMPTOM
     Dosage: 1 DF, TID
     Route: 048
     Dates: start: 20160628
  9. MAGMITT [Concomitant]
     Active Substance: MAGNESIUM OXIDE
     Indication: DYSCHEZIA
     Dosage: 330 MG, TID
     Route: 048
     Dates: start: 20160512
  10. 5-FU [Suspect]
     Active Substance: FLUOROURACIL
     Indication: COLON CANCER
     Dosage: 650 MG, Q2WK
     Route: 040
     Dates: start: 20160426, end: 20160705
  11. CALCIUM LEVOFOLINATE [Concomitant]
     Active Substance: LEVOLEUCOVORIN CALCIUM
     Indication: COLON CANCER
     Dosage: 325 MG, Q2WEEKS
     Route: 041
     Dates: start: 20160426, end: 20160705
  12. 5-FU [Suspect]
     Active Substance: FLUOROURACIL
     Dosage: 4100 MG, Q2WK
     Route: 041
     Dates: start: 20160426, end: 20160707
  13. AMARYL [Concomitant]
     Active Substance: GLIMEPIRIDE
     Indication: DIABETES MELLITUS
     Dosage: 1 DF, QD
     Route: 048
     Dates: end: 20160726

REACTIONS (12)
  - Palmar-plantar erythrodysaesthesia syndrome [Recovered/Resolved]
  - Diarrhoea [Recovered/Resolved]
  - Stomatitis [Recovered/Resolved]
  - Decreased appetite [Recovered/Resolved]
  - Hypomagnesaemia [Recovered/Resolved]
  - Peripheral sensory neuropathy [Unknown]
  - Interstitial lung disease [Fatal]
  - Dermatitis acneiform [Not Recovered/Not Resolved]
  - Fatigue [Unknown]
  - Nausea [Recovered/Resolved]
  - Diarrhoea [Recovered/Resolved]
  - Dysgeusia [Recovered/Resolved]

NARRATIVE: CASE EVENT DATE: 20160718
